FAERS Safety Report 21331694 (Version 1)
Quarter: 2022Q3

REPORT INFORMATION
  Report Type: Spontaneous
  Country: US (occurrence: None)
  Receive Date: 20220913
  Receipt Date: 20220913
  Transmission Date: 20221026
  Serious: Yes (Hospitalization)
  Sender: FDA-Public Use
  Company Number: None

PATIENT
  Age: 71 Year
  Sex: Female
  Weight: 63.19 kg

DRUGS (25)
  1. IMATINIB [Suspect]
     Active Substance: IMATINIB
     Indication: Chronic myeloid leukaemia
     Dosage: FREQUENCY : DAILY;?
     Route: 048
     Dates: start: 202207
  2. ALBUTEROL [Concomitant]
     Active Substance: ALBUTEROL
  3. ALENDRONATE [Concomitant]
  4. ASPIRIN [Concomitant]
     Active Substance: ASPIRIN
  5. BREO ELLIPTA [Concomitant]
  6. BUMETANIDE [Concomitant]
  7. CALCITROL [Concomitant]
  8. CARVEDILOL [Concomitant]
     Active Substance: CARVEDILOL
  9. FAMOTIDINE [Concomitant]
  10. FENTANYL [Concomitant]
     Active Substance: FENTANYL
  11. FERROUS SULFATE [Concomitant]
  12. FLONASE ALLERGY [Concomitant]
  13. GABAPENTIN [Concomitant]
  14. HYDRALAZINE [Concomitant]
  15. HYDROCODONE-ACETAMINOPHEN [Concomitant]
  16. LAMOTRIGINE [Concomitant]
  17. LEVOTHYROXINE [Concomitant]
  18. NITROGLYCERIN [Concomitant]
     Active Substance: NITROGLYCERIN
  19. NYSTATIN [Concomitant]
  20. OMEPRAZOLE [Concomitant]
  21. PAROXETINE [Concomitant]
  22. SODIUM BICARBONATE [Concomitant]
  23. SODIUM POLYSTYRENE SULFONATE [Suspect]
     Active Substance: SODIUM POLYSTYRENE SULFONATE
  24. TOPIRAMATE [Concomitant]
  25. VITAMIN D [Concomitant]

REACTIONS (1)
  - COVID-19 [None]
